FAERS Safety Report 13765600 (Version 2)
Quarter: 2017Q3

REPORT INFORMATION
  Report Type: Spontaneous
  Country: US (occurrence: US)
  Receive Date: 20170718
  Receipt Date: 20170823
  Transmission Date: 20171127
  Serious: No
  Sender: FDA-Public Use
  Company Number: US-ACTELION-A-US2017-156693

PATIENT
  Age: 54 Year
  Sex: Female

DRUGS (11)
  1. BETAMETHASONE DIPROPIONATE. [Concomitant]
     Active Substance: BETAMETHASONE DIPROPIONATE
  2. VITAMIN D3 [Concomitant]
     Active Substance: CHOLECALCIFEROL
  3. CALCIUM CARBONATE. [Concomitant]
     Active Substance: CALCIUM CARBONATE
  4. ACIDOPHILUS [Concomitant]
     Active Substance: LACTOBACILLUS ACIDOPHILUS
  5. MAGNESIUM [Concomitant]
     Active Substance: MAGNESIUM
  6. VALCHLOR [Suspect]
     Active Substance: MECHLORETHAMINE
     Indication: MYCOSIS FUNGOIDES
     Dosage: UNK, DAILY FOR 2 WEEKS THEN 1 WEEK OFF
     Route: 061
     Dates: start: 20170701
  7. VITAMIN C [Concomitant]
     Active Substance: ASCORBIC ACID
  8. CELEXA [Concomitant]
     Active Substance: CITALOPRAM HYDROBROMIDE
  9. EPIPEN [Concomitant]
     Active Substance: EPINEPHRINE
  10. HAIR, SKIN + NAILS [Concomitant]
     Active Substance: MINERALS\VITAMINS
  11. ZINC. [Concomitant]
     Active Substance: ZINC

REACTIONS (7)
  - Influenza like illness [Not Recovered/Not Resolved]
  - Throat irritation [Unknown]
  - Unevaluable event [Not Recovered/Not Resolved]
  - Oral pruritus [Unknown]
  - Nasal discomfort [Not Recovered/Not Resolved]
  - Headache [Not Recovered/Not Resolved]
  - Cough [Unknown]
